FAERS Safety Report 21106604 (Version 1)
Quarter: 2022Q3

REPORT INFORMATION
  Report Type: Spontaneous
  Country: US (occurrence: US)
  Receive Date: 20220720
  Receipt Date: 20220720
  Transmission Date: 20221027
  Serious: No
  Sender: FDA-Public Use
  Company Number: US-DSJP-DSU-2022-125026AA

PATIENT

DRUGS (3)
  1. ENHERTU [Suspect]
     Active Substance: FAM-TRASTUZUMAB DERUXTECAN-NXKI
     Indication: Product used for unknown indication
     Route: 065
  2. ALOXI [Concomitant]
     Active Substance: PALONOSETRON HYDROCHLORIDE
     Indication: Premedication
     Dosage: UNK
  3. EMEND [Concomitant]
     Active Substance: APREPITANT
     Indication: Premedication
     Dosage: UNK

REACTIONS (1)
  - Nausea [Recovered/Resolved]
